FAERS Safety Report 14548111 (Version 2)
Quarter: 2018Q1

REPORT INFORMATION
  Report Type: Spontaneous
  Country: US (occurrence: US)
  Receive Date: 20180219
  Receipt Date: 20180326
  Transmission Date: 20180509
  Serious: Yes (Other)
  Sender: FDA-Public Use
  Company Number: PHEH2018US006161

PATIENT
  Age: 81 Year
  Sex: Male

DRUGS (2)
  1. BETADINE [Concomitant]
     Active Substance: POVIDONE-IODINE
     Indication: PREOPERATIVE CARE
     Route: 065
  2. TRIESENCE [Suspect]
     Active Substance: TRIAMCINOLONE ACETONIDE
     Indication: CYSTOID MACULAR OEDEMA
     Dosage: UNK UNK, Q3MO
     Route: 031
     Dates: start: 20100204

REACTIONS (7)
  - Visual acuity reduced [Unknown]
  - Eye inflammation [Unknown]
  - Vitreous floaters [Unknown]
  - Vision blurred [Unknown]
  - Blindness unilateral [Not Recovered/Not Resolved]
  - Endophthalmitis [Recovering/Resolving]
  - Vitritis [Unknown]

NARRATIVE: CASE EVENT DATE: 20180205
